FAERS Safety Report 10026385 (Version 2)
Quarter: 2014Q1

REPORT INFORMATION
  Report Type: Spontaneous
  Country: None (occurrence: US)
  Receive Date: 20140321
  Receipt Date: 20140321
  Transmission Date: 20141002
  Serious: No
  Sender: FDA-Public Use
  Company Number: US-ALLERGAN-1400620US

PATIENT
  Sex: Female

DRUGS (3)
  1. LUMIGAN [Suspect]
     Indication: GLAUCOMA
     Dosage: 2 GTT, QHS
     Route: 047
     Dates: start: 2007
  2. COSOPT [Concomitant]
     Indication: EYE DEGENERATIVE DISORDER
  3. NEXIUM                             /01479302/ [Concomitant]
     Indication: PHARYNGEAL DISORDER

REACTIONS (2)
  - Respiratory tract congestion [Recovered/Resolved]
  - Expired drug administered [Unknown]
